FAERS Safety Report 13722460 (Version 1)
Quarter: 2017Q3

REPORT INFORMATION
  Report Type: Spontaneous
  Country: FR (occurrence: FR)
  Receive Date: 20170706
  Receipt Date: 20170706
  Transmission Date: 20171127
  Serious: Yes (Life-Threatening, Hospitalization)
  Sender: FDA-Public Use
  Company Number: FR-ASTRAZENECA-2017SE68611

PATIENT
  Age: 24210 Day
  Sex: Female
  Weight: 65 kg

DRUGS (6)
  1. MOPRAL [Suspect]
     Active Substance: OMEPRAZOLE SODIUM
     Indication: GASTROOESOPHAGEAL REFLUX DISEASE
     Route: 048
  2. UVEDOSE [Concomitant]
     Active Substance: CHOLECALCIFEROL
  3. NATISPRAY [Concomitant]
     Active Substance: NITROGLYCERIN
     Dosage: 1 INHALATION DAILY
  4. CHONDROITIN SULFATE [Concomitant]
     Active Substance: SODIUM CHONDROITIN SULFATE
  5. LEVOTHYROX [Concomitant]
     Active Substance: LEVOTHYROXINE
  6. HOMEOPATHIC NOS [Concomitant]

REACTIONS (3)
  - Status epilepticus [Recovered/Resolved]
  - Metabolic acidosis [Recovered/Resolved]
  - Hyponatraemia [Recovered/Resolved]

NARRATIVE: CASE EVENT DATE: 20170613
